FAERS Safety Report 5494629-X (Version None)
Quarter: 2007Q4

REPORT INFORMATION
  Report Type: 
  Country: None (occurrence: None)
  Receive Date: 20071024
  Receipt Date: 20071019
  Transmission Date: 20080405
  Serious: Yes (Other)
  Sender: FDA-Public Use
  Company Number: BR-ASTRAZENECA-2007UW24440

PATIENT
  Age: 49 Year
  Sex: Female
  Weight: 87 kg

DRUGS (4)
  1. SEROQUEL [Suspect]
     Indication: DEPRESSION
     Route: 048
     Dates: start: 20070911
  2. GLYBURIDE [Concomitant]
     Indication: DIABETES MELLITUS
  3. METILFORMINA [Concomitant]
     Indication: DIABETES MELLITUS
  4. INSULINA [Concomitant]
     Indication: DIABETES MELLITUS

REACTIONS (2)
  - IRRITABILITY [None]
  - WEIGHT INCREASED [None]
